FAERS Safety Report 8490217-1 (Version None)
Quarter: 2012Q3

REPORT INFORMATION
  Report Type: 
  Country: None (occurrence: None)
  Receive Date: 20120705
  Receipt Date: 20110928
  Transmission Date: 20120928
  Serious: No
  Sender: FDA-Public Use
  Company Number: US-BAUSCH-2011BL006575

PATIENT
  Age: 69 Year
  Sex: Male

DRUGS (4)
  1. LEVOTHYROXINE SODIUM [Concomitant]
  2. OPCON-A [Suspect]
     Indication: EYE PRURITUS
     Route: 047
     Dates: start: 20110401
  3. DOXAZOSIN MESYLATE [Concomitant]
  4. BUPROPION HCL [Concomitant]

REACTIONS (1)
  - EYE IRRITATION [None]
